FAERS Safety Report 4381350-4 (Version None)
Quarter: 2004Q2

REPORT INFORMATION
  Report Type: 
  Country: None (occurrence: None)
  Receive Date: 20040617
  Receipt Date: 20040617
  Transmission Date: 20050107
  Serious: No
  Sender: FDA-Public Use
  Company Number: None

PATIENT
  Sex: Female

DRUGS (3)
  1. WARFARIN SODIUM [Suspect]
     Dosage: Q DAY PO
     Route: 048
  2. PREMARIN [Concomitant]
  3. NITROGUIDA [Concomitant]

REACTIONS (2)
  - LABORATORY TEST ABNORMAL [None]
  - PHARMACEUTICAL PRODUCT COMPLAINT [None]
